FAERS Safety Report 6112352-5 (Version None)
Quarter: 2009Q1

REPORT INFORMATION
  Report Type: 
  Country: None (occurrence: None)
  Receive Date: 20090311
  Receipt Date: 20090311
  Transmission Date: 20090719
  Serious: Yes (Other)
  Sender: FDA-Public Use
  Company Number: None

PATIENT
  Sex: Male
  Weight: 79.3795 kg

DRUGS (4)
  1. RISPERIDONE [Suspect]
     Indication: ASPERGER'S DISORDER
     Dosage: 1 MG ONE QAM + TWO HS PO
     Route: 048
     Dates: start: 20080901
  2. RISPERIDONE [Suspect]
     Indication: MAJOR DEPRESSION
     Dosage: 1 MG ONE QAM + TWO HS PO
     Route: 048
     Dates: start: 20080901
  3. BUPROPION HCL [Concomitant]
  4. CONCERTA [Concomitant]

REACTIONS (2)
  - INSOMNIA [None]
  - NIGHTMARE [None]
